FAERS Safety Report 4920095-6 (Version None)
Quarter: 2006Q1

REPORT INFORMATION
  Report Type: 
  Country: None (occurrence: None)
  Receive Date: 20060223
  Receipt Date: 20060221
  Transmission Date: 20060701
  Serious: Yes (Other)
  Sender: FDA-Public Use
  Company Number: US-GLAXOSMITHKLINE-A0594598A

PATIENT
  Age: 60 Year
  Sex: Male

DRUGS (3)
  1. AQUAFRESH EXTREME CLEAN ORIGINAL EXPERIENCE + WHITENING TOOTHPASTE [Suspect]
     Indication: DENTAL CLEANING
  2. TRILEPTAL [Concomitant]
  3. ARICEPT [Concomitant]

REACTIONS (7)
  - ABASIA [None]
  - BACK PAIN [None]
  - HAEMATEMESIS [None]
  - MALAISE [None]
  - NEPHROLITHIASIS [None]
  - PAIN [None]
  - VOMITING [None]
